FAERS Safety Report 4783608-3 (Version None)
Quarter: 2005Q3

REPORT INFORMATION
  Report Type: 
  Country: None (occurrence: None)
  Receive Date: 20050929
  Receipt Date: 20050922
  Transmission Date: 20060218
  Serious: Yes (Death)
  Sender: FDA-Public Use
  Company Number: US-JNJFOC-20050905808

PATIENT
  Age: 24 Year
  Sex: Male

DRUGS (3)
  1. DURAGESIC-100 [Suspect]
     Route: 062
     Dates: start: 20050915, end: 20050915
  2. SEIZURE MEDICATIONS [Concomitant]
     Dates: end: 20050915
  3. ROXICODONE [Concomitant]
     Indication: PAIN
     Dates: end: 20050915

REACTIONS (1)
  - DEATH [None]
